FAERS Safety Report 9934669 (Version 1)
Quarter: 2014Q1

REPORT INFORMATION
  Report Type: Not Available
  Country: DK (occurrence: DK)
  Receive Date: 20140228
  Receipt Date: 20140228
  Transmission Date: 20141002
  Serious: Yes (Hospitalization)
  Sender: FDA-Public Use
  Company Number: DK-NAPPMUNDI-GBR-2014-0017153

PATIENT
  Age: 52 Year
  Sex: Male

DRUGS (2)
  1. OXYCONTIN DEPOTTABLETTER [Suspect]
     Indication: PAIN
     Dosage: 20 MG, BID
     Route: 048
  2. NALMEFENE HYDROCHLORIDE [Interacting]
     Indication: PRODUCT USED FOR UNKNOWN INDICATION
     Dosage: 18 MG, UNK
     Route: 065

REACTIONS (10)
  - Drug interaction [Unknown]
  - Akathisia [Unknown]
  - Sneezing [Unknown]
  - Lacrimation increased [Unknown]
  - Malaise [Unknown]
  - Anxiety [Unknown]
  - Restlessness [Unknown]
  - Muscle spasms [Unknown]
  - Diarrhoea [Unknown]
  - Feeling hot [Unknown]
